FAERS Safety Report 8213414-9 (Version None)
Quarter: 2012Q1

REPORT INFORMATION
  Report Type: 
  Country: None (occurrence: None)
  Receive Date: 20120315
  Receipt Date: 20120313
  Transmission Date: 20120608
  Serious: Yes (Other)
  Sender: FDA-Public Use
  Company Number: CN-ROCHE-1048767

PATIENT

DRUGS (1)
  1. XELODA [Suspect]
     Indication: RECTAL CANCER

REACTIONS (6)
  - RECTAL TENESMUS [None]
  - FATIGUE [None]
  - RADIATION SKIN INJURY [None]
  - DIARRHOEA [None]
  - ABDOMINAL PAIN [None]
  - WHITE BLOOD CELL COUNT DECREASED [None]
